FAERS Safety Report 9436976 (Version 1)
Quarter: 2013Q3

REPORT INFORMATION
  Report Type: Spontaneous
  Country: US (occurrence: US)
  Receive Date: 20130802
  Receipt Date: 20130802
  Transmission Date: 20140515
  Serious: No
  Sender: FDA-Public Use
  Company Number: US-009507513-1307USA017275

PATIENT
  Age: 17 Year
  Sex: Female
  Weight: 71.2 kg

DRUGS (2)
  1. NEXPLANON [Suspect]
     Indication: CONTRACEPTION
     Dosage: 1 ROD, THREE YEARS
     Route: 059
     Dates: start: 20130729, end: 20130729
  2. NEXPLANON [Suspect]
     Dosage: 1 ROD, THREE YEARS
     Route: 059
     Dates: start: 20130729

REACTIONS (3)
  - Implant site bruising [Recovering/Resolving]
  - Device difficult to use [Recovered/Resolved]
  - Product quality issue [Unknown]
